FAERS Safety Report 9702305 (Version 1)
Quarter: 2013Q4

REPORT INFORMATION
  Report Type: Spontaneous
  Country: AT (occurrence: AT)
  Receive Date: 20131121
  Receipt Date: 20131121
  Transmission Date: 20140711
  Serious: Yes (Death, Other)
  Sender: FDA-Public Use
  Company Number: AT-CELGENEUS-009-21660-13111583

PATIENT
  Age: 71 Year
  Sex: Female

DRUGS (1)
  1. ABRAXANE [Suspect]
     Indication: BREAST CANCER METASTATIC
     Route: 065
     Dates: start: 20131009, end: 2013

REACTIONS (7)
  - Death [Fatal]
  - Sepsis [Unknown]
  - Febrile neutropenia [Unknown]
  - Circulatory collapse [Unknown]
  - Fracture [Unknown]
  - Diarrhoea [Unknown]
  - Fall [Unknown]
